FAERS Safety Report 25687479 (Version 1)
Quarter: 2025Q3

REPORT INFORMATION
  Report Type: Spontaneous
  Country: EU (occurrence: EU)
  Receive Date: 20250817
  Receipt Date: 20250817
  Transmission Date: 20251021
  Serious: Yes (Hospitalization)
  Sender: AUROBINDO
  Company Number: EU-AFSSAPS-AN2025001028

PATIENT
  Age: 70 Year
  Sex: Male

DRUGS (2)
  1. CAPECITABINE [Suspect]
     Active Substance: CAPECITABINE
     Indication: Colorectal cancer
     Dosage: 1300 MILLIGRAM, ONCE A DAY
     Route: 048
     Dates: start: 20250630
  2. BEVACIZUMAB [Suspect]
     Active Substance: BEVACIZUMAB
     Indication: Colorectal cancer
     Route: 042
     Dates: start: 202409

REACTIONS (4)
  - Rash [Recovering/Resolving]
  - Conjunctivitis [Recovering/Resolving]
  - Cheilitis [Recovering/Resolving]
  - Urethritis [Recovering/Resolving]

NARRATIVE: CASE EVENT DATE: 20250715
